FAERS Safety Report 17688385 (Version 1)
Quarter: 2020Q2

REPORT INFORMATION
  Report Type: Spontaneous
  Country: US (occurrence: US)
  Receive Date: 20200420
  Receipt Date: 20200420
  Transmission Date: 20200714
  Serious: Yes (Other)
  Sender: FDA-Public Use
  Company Number: None

PATIENT
  Age: 64 Year
  Sex: Female

DRUGS (8)
  1. ROSUVASTATIN 20MG TABLETS [Concomitant]
     Active Substance: ROSUVASTATIN
  2. VENLAFAXINE ER 75MG ER CAPSULES [Concomitant]
  3. AUSTEDO [Suspect]
     Active Substance: DEUTETRABENAZINE
     Indication: TARDIVE DYSKINESIA
     Route: 048
  4. CALCIUM/VITAMIN D 500-200 MG-UNIT [Concomitant]
  5. SAXENDA SQ 18MG/3ML [Concomitant]
  6. ALPRAZOLAM 1MG TABLET [Concomitant]
     Active Substance: ALPRAZOLAM
  7. AUSTEDO [Suspect]
     Active Substance: DEUTETRABENAZINE
     Indication: TARDIVE DYSKINESIA
     Route: 048
  8. PRAZOSIN 5MG CAPS [Concomitant]

REACTIONS (1)
  - Drooling [None]

NARRATIVE: CASE EVENT DATE: 20200420
